FAERS Safety Report 24534359 (Version 1)
Quarter: 2024Q4

REPORT INFORMATION
  Report Type: Spontaneous
  Country: AU (occurrence: AU)
  Receive Date: 20241022
  Receipt Date: 20241022
  Transmission Date: 20250115
  Serious: Yes (Hospitalization)
  Sender: MYLAN
  Company Number: AU-MYLANLABS-2024M1090588

PATIENT
  Sex: Male

DRUGS (1)
  1. CLOZARIL [Suspect]
     Active Substance: CLOZAPINE
     Indication: Schizophrenia
     Dosage: 75 MILLIGRAM
     Route: 048
     Dates: start: 20241001

REACTIONS (4)
  - Hospitalisation [Unknown]
  - Gait disturbance [Unknown]
  - Sedation [Unknown]
  - Hypotension [Unknown]
